FAERS Safety Report 4927931-8 (Version None)
Quarter: 2006Q1

REPORT INFORMATION
  Report Type: 
  Country: None (occurrence: None)
  Receive Date: 20060223
  Receipt Date: 20060214
  Transmission Date: 20060701
  Serious: Yes (Life-Threatening, Hospitalization)
  Sender: FDA-Public Use
  Company Number: 2006024860

PATIENT
  Age: 36 Year
  Sex: Female

DRUGS (6)
  1. NORVASC [Suspect]
     Indication: ILL-DEFINED DISORDER
     Dosage: 35MG,  7 TABLETS (UNKNOWN), ORAL
     Route: 048
     Dates: start: 20060213, end: 20060213
  2. CARDENALIN (DOZAZOSIN) [Suspect]
     Indication: ILL-DEFINED DISORDER
     Dosage: 14MG, 7 TABLETS (UNKNOWN), ORAL
     Route: 048
     Dates: start: 20060213, end: 20060213
  3. ALDACTONE [Suspect]
     Indication: ILL-DEFINED DISORDER
     Dosage: 175MG, 7 TABLETS (UNKNOWN), ORAL
     Route: 048
     Dates: start: 20060213, end: 20060213
  4. FUROSEMIDE [Suspect]
     Indication: ILL-DEFINED DISORDER
     Dosage: 140MG, 7 TABLETS (UNKNOWN), ORAL
     Route: 048
     Dates: start: 20060213, end: 20060213
  5. CANDESARTAN CILEXETIL (CANDESARTAN CILEXETIL) [Suspect]
     Indication: ILL-DEFINED DISORDER
     Dosage: 56MG, 7 TABLETS (UNKNOWN), ORAL
     Route: 048
     Dates: start: 20060213, end: 20060213
  6. PIOGLITAZONE HCL [Suspect]
     Indication: ILL-DEFINED DISORDER
     Dosage: 210 MG, 7 TABLETS (UNKNOWN), ORAL
     Route: 048
     Dates: start: 20060213, end: 20060213

REACTIONS (5)
  - DEPRESSED LEVEL OF CONSCIOUSNESS [None]
  - MULTIPLE DRUG OVERDOSE INTENTIONAL [None]
  - OLIGURIA [None]
  - SHOCK [None]
  - SUICIDE ATTEMPT [None]
